FAERS Safety Report 5557971-X (Version None)
Quarter: 2007Q4

REPORT INFORMATION
  Report Type: 
  Country: None (occurrence: None)
  Receive Date: 20071211
  Receipt Date: 20071125
  Transmission Date: 20080405
  Serious: Yes (Hospitalization)
  Sender: FDA-Public Use
  Company Number: ENT 2007-0220

PATIENT
  Age: 71 Year
  Sex: Male

DRUGS (8)
  1. COMTAN [Suspect]
     Indication: SUICIDE ATTEMPT
     Dosage: 16 G ONCE/SINGLE  ORAL
     Route: 048
     Dates: start: 20070919, end: 20070919
  2. STALEVO 100 [Suspect]
     Indication: PARKINSON'S DISEASE
     Dosage: 750/187,5/1000MG, ORAL
     Route: 048
     Dates: end: 20070918
  3. STALEVO 100 [Suspect]
     Indication: PARKINSON'S DISEASE
     Dosage: 750/187,5/1000MG, ORAL
     Route: 048
     Dates: start: 20070920
  4. RIVOTRIL [Suspect]
     Indication: SUICIDE ATTEMPT
     Dosage: 2, 5 MG/ML, 12 DR, ORAL, ONCE FLASK, ONCE SINGLE, ORAL
     Route: 048
     Dates: end: 20070918
  5. RIVOTRIL [Suspect]
     Indication: SUICIDE ATTEMPT
     Dosage: 2, 5 MG/ML, 12 DR, ORAL, ONCE FLASK, ONCE SINGLE, ORAL
     Route: 048
     Dates: start: 20070919, end: 20070919
  6. ALCOHOL [Suspect]
     Indication: SUICIDE ATTEMPT
     Dosage: 1 BOTTLE, ONCE SINGLE, ORAL
     Route: 048
     Dates: start: 20070919, end: 20070919
  7. EFFERALGAN [Concomitant]
  8. LACTULOSE [Concomitant]

REACTIONS (6)
  - ALCOHOL USE [None]
  - INTENTIONAL OVERDOSE [None]
  - LUNG DISORDER [None]
  - NEUROLEPTIC MALIGNANT SYNDROME [None]
  - SUICIDE ATTEMPT [None]
  - WITHDRAWAL SYNDROME [None]
